FAERS Safety Report 6223786-2 (Version None)
Quarter: 2009Q2

REPORT INFORMATION
  Report Type: 
  Country: None (occurrence: None)
  Receive Date: 20090611
  Receipt Date: 20090323
  Transmission Date: 20091009
  Serious: Yes (Other)
  Sender: FDA-Public Use
  Company Number: US-ABBOTT-09P-163-0558819-00

PATIENT
  Sex: Male

DRUGS (4)
  1. HUMIRA [Suspect]
     Indication: CROHN'S DISEASE
     Dosage: DAY 1 - ONCE
     Dates: start: 20090220, end: 20090220
  2. HUMIRA [Suspect]
     Dosage: DAY 2 - ONCE
     Route: 058
     Dates: start: 20090221, end: 20090221
  3. HUMIRA [Suspect]
  4. WARFARIN SODIUM [Suspect]
     Indication: DRUG USE FOR UNKNOWN INDICATION

REACTIONS (6)
  - ANORECTAL DISCOMFORT [None]
  - INJECTION SITE PAIN [None]
  - OEDEMA PERIPHERAL [None]
  - RECTAL DISCHARGE [None]
  - RECTAL HAEMORRHAGE [None]
  - THROMBOSIS [None]
